FAERS Safety Report 11337036 (Version 1)
Quarter: 2015Q3

REPORT INFORMATION
  Report Type: Spontaneous
  Country: US (occurrence: US)
  Receive Date: 20150804
  Receipt Date: 20150804
  Transmission Date: 20151125
  Serious: No
  Sender: FDA-Public Use
  Company Number: US-PRINSTON PHARMACEUTICAL INC.-2014PAC00021

PATIENT
  Age: 87 Year
  Sex: Female
  Weight: 56.69 kg

DRUGS (3)
  1. UNSPECIFIED SUPPLEMENTS [Concomitant]
  2. OTC DIARRHEA MEDICATION (UNSPECIFIED) [Concomitant]
     Dosage: UNK, AS NEEDED
  3. LOSARTAN POTASSIUM. [Suspect]
     Active Substance: LOSARTAN POTASSIUM
     Indication: HYPERTENSION
     Dosage: 25 MG, 1X/DAY
     Route: 048
     Dates: start: 20140705

REACTIONS (1)
  - Respiratory tract congestion [Not Recovered/Not Resolved]

NARRATIVE: CASE EVENT DATE: 20140705
